FAERS Safety Report 7978212-X (Version None)
Quarter: 2011Q4

REPORT INFORMATION
  Report Type: 
  Country: None (occurrence: None)
  Receive Date: 20111129
  Receipt Date: 20110929
  Transmission Date: 20120403
  Serious: No
  Sender: FDA-Public Use
  Company Number: PHEH2011US05521

PATIENT
  Age: 79 Year
  Sex: Female
  Weight: 67.586 kg

DRUGS (1)
  1. AFINITOR [Suspect]
     Indication: HEPATIC CANCER METASTATIC
     Dosage: 10 MG, DAILY, ORAL
     Route: 048
     Dates: start: 20110525

REACTIONS (1)
  - NO ADVERSE EVENT [None]
